FAERS Safety Report 9444988 (Version 1)
Quarter: 2013Q3

REPORT INFORMATION
  Report Type: Spontaneous
  Country: CA (occurrence: None)
  Receive Date: 20130729
  Receipt Date: 20130729
  Transmission Date: 20140515
  Serious: Yes (Hospitalization)
  Sender: FDA-Public Use
  Company Number: 2013037043

PATIENT
  Age: 4 Year
  Sex: Male

DRUGS (1)
  1. PRIVIGEN (IMMUNE GLOBULIN INTRAVENOUS (HUMAN) 10% LIQUID) [Suspect]
     Indication: KAWASAKI^S DISEASE
     Dosage: 75 ML, 20 GM (200 MLG)??(NOT OTHERWISE SPECIFIED)
     Route: 042
     Dates: start: 20130714, end: 20130714

REACTIONS (6)
  - Hypotension [None]
  - Tachycardia [None]
  - Pyrexia [None]
  - Chills [None]
  - Off label use [None]
  - General physical health deterioration [None]
